FAERS Safety Report 13366929 (Version 2)
Quarter: 2017Q1

REPORT INFORMATION
  Report Type: Report from Study
  Country: GB (occurrence: GB)
  Receive Date: 20170324
  Receipt Date: 20170328
  Transmission Date: 20170429
  Serious: Yes (Hospitalization)
  Sender: FDA-Public Use
  Company Number: GB-ROCHE-1909946

PATIENT
  Age: 64 Year
  Sex: Male
  Weight: 95.3 kg

DRUGS (16)
  1. AMOXYCILLIN [Concomitant]
     Active Substance: AMOXICILLIN
     Indication: VIRAL INFECTION
     Route: 048
     Dates: start: 20160216, end: 20160322
  2. LEVOTHYROXINE. [Concomitant]
     Active Substance: LEVOTHYROXINE
     Route: 048
     Dates: start: 20160616, end: 20160727
  3. LEVOTHYROXINE. [Concomitant]
     Active Substance: LEVOTHYROXINE
     Indication: HYPOTHYROIDISM
     Route: 048
     Dates: start: 20160525, end: 20160615
  4. LOSATAN [Concomitant]
     Active Substance: LOSARTAN
     Indication: HYPERTENSION
     Route: 048
     Dates: start: 201612, end: 20170103
  5. ATEZOLIZUMAB [Suspect]
     Active Substance: ATEZOLIZUMAB
     Indication: RENAL CELL CARCINOMA
     Dosage: FREQUENCY AND INITIAL DOSE PER PROTOCOL?THE MOST RECENT DOSE OF ATEZOLIZUMAB 1200 MG PRIOR TO THE EV
     Route: 042
     Dates: start: 20160210
  6. LOPERAMIDE [Concomitant]
     Active Substance: LOPERAMIDE
     Indication: DIARRHOEA
     Route: 048
     Dates: start: 20160601
  7. TIMODINE (UNITED KINGDOM) [Concomitant]
     Indication: HAEMORRHOIDS
     Route: 061
     Dates: start: 20160915
  8. BEVACIZUMAB [Suspect]
     Active Substance: BEVACIZUMAB
     Indication: RENAL CELL CARCINOMA
     Dosage: FREQUENCY AND INITIAL DOSE PER PROTOCOL?THE MOST RECENT DOSE OF BEVACIZUMAB 1425 MG PRIOR TO THE EVE
     Route: 042
     Dates: start: 20160210
  9. ANUSOL (UNITED KINGDOM) [Concomitant]
     Indication: HAEMORRHOIDS
     Route: 061
  10. PARACETAMOL [Concomitant]
     Active Substance: ACETAMINOPHEN
     Indication: BACK PAIN
     Route: 048
     Dates: start: 20160523
  11. LOSATAN [Concomitant]
     Active Substance: LOSARTAN
     Route: 048
     Dates: start: 20170104, end: 20170124
  12. CANDESARTAN [Concomitant]
     Active Substance: CANDESARTAN
     Route: 048
     Dates: start: 20170221
  13. VALSARTAN. [Concomitant]
     Active Substance: VALSARTAN
     Indication: HYPERTENSION
     Route: 048
  14. ATORVASTATIN [Concomitant]
     Active Substance: ATORVASTATIN
     Indication: HYPERCHOLESTEROLAEMIA
     Route: 048
  15. LEVOTHYROXINE. [Concomitant]
     Active Substance: LEVOTHYROXINE
     Route: 048
     Dates: start: 20160728
  16. CANDESARTAN [Concomitant]
     Active Substance: CANDESARTAN
     Indication: HYPERTENSION
     Route: 048
     Dates: start: 20170104, end: 20170124

REACTIONS (2)
  - Abdominal pain lower [Not Recovered/Not Resolved]
  - Acute kidney injury [Not Recovered/Not Resolved]

NARRATIVE: CASE EVENT DATE: 20170315
